FAERS Safety Report 11833051 (Version 2)
Quarter: 2016Q1

REPORT INFORMATION
  Report Type: Spontaneous
  Country: US (occurrence: US)
  Receive Date: 20151214
  Receipt Date: 20160121
  Transmission Date: 20160525
  Serious: No
  Sender: FDA-Public Use
  Company Number: US-BRISTOL-MYERS SQUIBB COMPANY-BMS-2015-085438

PATIENT
  Age: 75 Year
  Sex: Male

DRUGS (2)
  1. SPRYCEL [Suspect]
     Active Substance: DASATINIB
     Indication: CHRONIC MYELOID LEUKAEMIA
     Dosage: 140 MG, QD
     Route: 048
     Dates: start: 20151016
  2. SPRYCEL [Suspect]
     Active Substance: DASATINIB
     Dosage: 80 UNK, UNK
     Route: 048
     Dates: start: 20151016

REACTIONS (6)
  - Stomatitis [Not Recovered/Not Resolved]
  - Headache [Recovering/Resolving]
  - Epistaxis [Recovering/Resolving]
  - Somnolence [Not Recovered/Not Resolved]
  - Dizziness [Unknown]
  - Fatigue [Not Recovered/Not Resolved]

NARRATIVE: CASE EVENT DATE: 20151017
